FAERS Safety Report 25820227 (Version 1)
Quarter: 2025Q3

REPORT INFORMATION
  Report Type: Spontaneous
  Country: EU (occurrence: None)
  Receive Date: 20250919
  Receipt Date: 20250919
  Transmission Date: 20251021
  Serious: Yes (Hospitalization, Other)
  Sender: Alvotech
  Company Number: EU-ALVOTECHPMS-2025-ALVOTECHPMS-005208

PATIENT
  Age: 53 Year

DRUGS (1)
  1. ADALIMUMAB [Suspect]
     Active Substance: ADALIMUMAB
     Indication: Rheumatoid arthritis
     Route: 065

REACTIONS (1)
  - Chronic cutaneous lupus erythematosus [Recovering/Resolving]
